FAERS Safety Report 11194143 (Version 1)
Quarter: 2015Q2

REPORT INFORMATION
  Report Type: Spontaneous
  Country: US (occurrence: US)
  Receive Date: 20150616
  Receipt Date: 20150616
  Transmission Date: 20150821
  Serious: No
  Sender: FDA-Public Use
  Company Number: US-LPDUSPRD-20150037

PATIENT

DRUGS (1)
  1. CYANOCOBALAMIN INJECTION, USP (0032-25) [Suspect]
     Active Substance: CYANOCOBALAMIN
     Dosage: DOSE NOT REPORTED
     Route: 065
     Dates: start: 20150120, end: 20150120

REACTIONS (2)
  - Expired product administered [Unknown]
  - No adverse event [Unknown]

NARRATIVE: CASE EVENT DATE: 20150120
